FAERS Safety Report 5159368-3 (Version None)
Quarter: 2006Q4

REPORT INFORMATION
  Report Type: 
  Country: None (occurrence: None)
  Receive Date: 20061120
  Receipt Date: 20061108
  Transmission Date: 20070319
  Serious: Yes (Hospitalization)
  Sender: FDA-Public Use
  Company Number: 2006SS000093

PATIENT
  Sex: Female

DRUGS (3)
  1. MYOBLOC [Suspect]
     Indication: DYSTONIA
     Dosage: 30000 UNITS
  2. NEURONTIN [Concomitant]
  3. METHADONE HCL [Concomitant]

REACTIONS (3)
  - DIPLOPIA [None]
  - OFF LABEL USE [None]
  - RESPIRATORY FAILURE [None]
